FAERS Safety Report 20303409 (Version 2)
Quarter: 2022Q4

REPORT INFORMATION
  Report Type: Spontaneous
  Country: US (occurrence: US)
  Receive Date: 20220106
  Receipt Date: 20221123
  Transmission Date: 20230113
  Serious: Yes (Other)
  Sender: FDA-Public Use
  Company Number: US-GILEAD-2022-0563851

PATIENT
  Sex: Female
  Weight: 81.633 kg

DRUGS (8)
  1. TRUVADA [Suspect]
     Active Substance: EMTRICITABINE\TENOFOVIR DISOPROXIL FUMARATE
     Indication: HIV infection
     Dosage: UNK
     Route: 048
     Dates: start: 2004, end: 2016
  2. ODEFSEY [Concomitant]
     Active Substance: EMTRICITABINE\RILPIVIRINE HYDROCHLORIDE\TENOFOVIR ALAFENAMIDE FUMARATE
  3. EDURANT [Concomitant]
     Active Substance: RILPIVIRINE HYDROCHLORIDE
  4. EPIVIR [Concomitant]
     Active Substance: LAMIVUDINE
  5. NORVIR [Concomitant]
     Active Substance: RITONAVIR
  6. RETROVIR [Concomitant]
     Active Substance: ZIDOVUDINE
  7. SUSTIVA [Concomitant]
     Active Substance: EFAVIRENZ
  8. JARDIANCE [Concomitant]
     Active Substance: EMPAGLIFLOZIN

REACTIONS (7)
  - Osteoporosis [Unknown]
  - Bone demineralisation [Unknown]
  - Emotional distress [Not Recovered/Not Resolved]
  - Anhedonia [Not Recovered/Not Resolved]
  - Pain [Not Recovered/Not Resolved]
  - Anxiety [Not Recovered/Not Resolved]
  - Osteopenia [Not Recovered/Not Resolved]

NARRATIVE: CASE EVENT DATE: 20140101
